FAERS Safety Report 12788140 (Version 1)
Quarter: 2016Q3

REPORT INFORMATION
  Report Type: Spontaneous
  Country: US (occurrence: US)
  Receive Date: 20160928
  Receipt Date: 20160928
  Transmission Date: 20161109
  Serious: No
  Sender: FDA-Public Use
  Company Number: US-TEVA-644348USA

PATIENT
  Sex: Female
  Weight: 63.56 kg

DRUGS (1)
  1. SPRINTEC [Suspect]
     Active Substance: ETHINYL ESTRADIOL\NORGESTIMATE
     Indication: CONTRACEPTION
     Dosage: 0.250 MG/0.035 MG
     Dates: start: 201507

REACTIONS (4)
  - Menstrual disorder [Unknown]
  - Muscle spasms [Unknown]
  - Menorrhagia [Unknown]
  - Dysmenorrhoea [Unknown]
